FAERS Safety Report 10213250 (Version 2)
Quarter: 2014Q3

REPORT INFORMATION
  Report Type: Report from Study
  Country: JP (occurrence: None)
  Receive Date: 20140529
  Receipt Date: 20140708
  Transmission Date: 20150326
  Serious: Yes (Other)
  Sender: FDA-Public Use
  Company Number: JP-015838

PATIENT
  Age: 72 Year
  Sex: Male

DRUGS (10)
  1. CASODEX [Concomitant]
     Active Substance: BICALUTAMIDE
  2. BIOSMIN [Concomitant]
  3. ADALAT [Concomitant]
     Active Substance: NIFEDIPINE
  4. DIOVAN [Concomitant]
     Active Substance: VALSARTAN
  5. DEGARELIX [Suspect]
     Active Substance: DEGARELIX
     Indication: PROSTATE CANCER
     Dosage: APPARENTLY SCHEDULED AS INTERMITTENT TREATMENT SUBCUATANEOUS
     Route: 058
     Dates: start: 20130402, end: 20130402
  6. PANAX GINSENG ROOT [Concomitant]
  7. TENORMIN [Concomitant]
     Active Substance: ATENOLOL
  8. NEXIUM [Concomitant]
     Active Substance: ESOMEPRAZOLE MAGNESIUM
  9. FLIVAS [Concomitant]
     Active Substance: NAFTOPIDIL
  10. BUP-4 [Concomitant]
     Active Substance: PROPIVERINE

REACTIONS (3)
  - Transient ischaemic attack [None]
  - Muscular weakness [None]
  - Carotid artery occlusion [None]
